FAERS Safety Report 25831046 (Version 1)
Quarter: 2025Q3

REPORT INFORMATION
  Report Type: Spontaneous
  Country: EU (occurrence: EU)
  Receive Date: 20250922
  Receipt Date: 20250922
  Transmission Date: 20251020
  Serious: Yes (Disabling)
  Sender: TAKEDA
  Company Number: EU-LUNDBECK-DKLU4019165

PATIENT
  Age: 38 Year
  Sex: Female

DRUGS (1)
  1. BRINTELLIX [Suspect]
     Active Substance: VORTIOXETINE HYDROBROMIDE
     Indication: Anxiety
     Dates: start: 20250725, end: 20250817

REACTIONS (8)
  - Skin exfoliation [Recovering/Resolving]
  - Galactorrhoea [Recovering/Resolving]
  - Insomnia [Unknown]
  - Restless legs syndrome [Recovered/Resolved]
  - Rash [Recovering/Resolving]
  - Contusion [Recovering/Resolving]
  - Pruritus [Recovered/Resolved]
  - Product use in unapproved indication [Unknown]

NARRATIVE: CASE EVENT DATE: 20250728
